FAERS Safety Report 24625549 (Version 1)
Quarter: 2024Q4

REPORT INFORMATION
  Report Type: Spontaneous
  Country: US (occurrence: None)
  Receive Date: 20241115
  Receipt Date: 20241115
  Transmission Date: 20250115
  Serious: Yes (Other)
  Sender: Public
  Company Number: None

PATIENT
  Age: 42 Year
  Sex: Female
  Weight: 92.7 kg

DRUGS (1)
  1. MOUNJARO [Suspect]
     Active Substance: TIRZEPATIDE
     Indication: Diabetes mellitus
     Dosage: OTHER QUANTITY : 4 INJECTION(S);?OTHER FREQUENCY : WEEKLY;?
     Route: 058
     Dates: start: 20241114, end: 20241115

REACTIONS (6)
  - Gastrointestinal sounds abnormal [None]
  - Blood glucose decreased [None]
  - Cervical radiculopathy [None]
  - Nausea [None]
  - Dry mouth [None]
  - Pain [None]

NARRATIVE: CASE EVENT DATE: 20241114
